FAERS Safety Report 9050401 (Version 1)
Quarter: 2013Q1

REPORT INFORMATION
  Report Type: Spontaneous
  Country: US (occurrence: US)
  Receive Date: 20130205
  Receipt Date: 20130205
  Transmission Date: 20140127
  Serious: Yes (Other)
  Sender: FDA-Public Use
  Company Number: US-BRISTOL-MYERS SQUIBB COMPANY-17324328

PATIENT
  Age: 9 Year
  Sex: Male

DRUGS (5)
  1. ENTECAVIR [Suspect]
     Indication: CHRONIC HEPATITIS B
     Dosage: INITIALLY ON 6.6 ML (0.33 MG).
     Route: 048
     Dates: start: 20110421
  2. ZOLOFT [Concomitant]
  3. MIRALAX [Concomitant]
  4. RANITIDINE [Concomitant]
  5. RISPERIDONE [Concomitant]

REACTIONS (1)
  - Precocious puberty [Not Recovered/Not Resolved]
